FAERS Safety Report 6720370-9 (Version None)
Quarter: 2010Q2

REPORT INFORMATION
  Report Type: 
  Country: None (occurrence: None)
  Receive Date: 20100507
  Receipt Date: 20100426
  Transmission Date: 20101027
  Serious: Yes (Other)
  Sender: FDA-Public Use
  Company Number: 1000009248

PATIENT
  Sex: Female

DRUGS (4)
  1. ESCITALOPRAM [Suspect]
     Indication: DEPRESSION
     Dosage: 10 MG (10 MG, 1 IN 1 D), ORAL 20 MG (1 IN 1 D) ORAL
     Route: 048
     Dates: start: 20090801, end: 20090915
  2. ESCITALOPRAM [Suspect]
     Indication: DEPRESSION
     Dosage: 10 MG (10 MG, 1 IN 1 D), ORAL 20 MG (1 IN 1 D) ORAL
     Route: 048
     Dates: start: 20090916, end: 20091101
  3. XANAX [Concomitant]
  4. NORSET [Concomitant]

REACTIONS (5)
  - AGGRESSION [None]
  - OBSESSIVE THOUGHTS [None]
  - PSYCHOTIC DISORDER [None]
  - SLEEP DISORDER [None]
  - VIOLENCE-RELATED SYMPTOM [None]
